FAERS Safety Report 24795114 (Version 1)
Quarter: 2024Q4

REPORT INFORMATION
  Report Type: Spontaneous
  Country: CN (occurrence: CN)
  Receive Date: 20241231
  Receipt Date: 20241231
  Transmission Date: 20250115
  Serious: Yes (Hospitalization)
  Sender: MYLAN
  Company Number: CN-MYLANLABS-2024M1116572

PATIENT
  Age: 52 Year
  Sex: Female
  Weight: 51 kg

DRUGS (1)
  1. NORVASC [Suspect]
     Active Substance: AMLODIPINE BESYLATE
     Indication: Hypertension
     Dosage: 5 MILLIGRAM, QD (A DOSE OF 5 MG ORALLY QD)
     Route: 048
     Dates: start: 20241009, end: 20241209

REACTIONS (1)
  - Melaena [Recovering/Resolving]

NARRATIVE: CASE EVENT DATE: 20241209
